FAERS Safety Report 11097984 (Version 1)
Quarter: 2015Q2

REPORT INFORMATION
  Report Type: Spontaneous
  Country: EE (occurrence: EE)
  Receive Date: 20150507
  Receipt Date: 20150507
  Transmission Date: 20150821
  Serious: Yes (Disabling, Other)
  Sender: FDA-Public Use
  Company Number: PHHY2015EE054622

PATIENT

DRUGS (2)
  1. LEPONEX [Suspect]
     Active Substance: CLOZAPINE
     Indication: PRODUCT USED FOR UNKNOWN INDICATION
     Dosage: 100 MG, QD
     Route: 065
  2. LEPONEX [Suspect]
     Active Substance: CLOZAPINE
     Dosage: UNK
     Route: 065

REACTIONS (5)
  - Nervous system disorder [Not Recovered/Not Resolved]
  - Liver disorder [Not Recovered/Not Resolved]
  - Pain [Unknown]
  - Cerebral haemorrhage [Not Recovered/Not Resolved]
  - Suicidal ideation [Unknown]

NARRATIVE: CASE EVENT DATE: 20100804
